FAERS Safety Report 25851225 (Version 1)
Quarter: 2025Q3

REPORT INFORMATION
  Report Type: Spontaneous
  Country: US (occurrence: US)
  Receive Date: 20250926
  Receipt Date: 20250926
  Transmission Date: 20251021
  Serious: No
  Sender: GLAND PHARMA LTD
  Company Number: US-GLANDPHARMA-US-2025GLNSPO01753

PATIENT
  Sex: Female

DRUGS (7)
  1. GEMCITABINE [Suspect]
     Active Substance: GEMCITABINE
     Indication: Ovarian cancer stage III
     Route: 065
     Dates: start: 202506
  2. GEMCITABINE [Suspect]
     Active Substance: GEMCITABINE
     Route: 065
  3. CARBOPLATIN [Suspect]
     Active Substance: CARBOPLATIN
     Indication: Ovarian cancer stage III
     Route: 065
     Dates: start: 202506
  4. CARBOPLATIN [Suspect]
     Active Substance: CARBOPLATIN
     Route: 065
  5. AVASTIN [Suspect]
     Active Substance: BEVACIZUMAB
     Indication: Ovarian cancer stage III
     Route: 065
     Dates: start: 202506
  6. AVASTIN [Suspect]
     Active Substance: BEVACIZUMAB
     Route: 065
  7. NIRAPARIB [Concomitant]
     Active Substance: NIRAPARIB
     Route: 065

REACTIONS (1)
  - Carbohydrate antigen 125 increased [Unknown]

NARRATIVE: CASE EVENT DATE: 20250101
